FAERS Safety Report 5913759-9 (Version None)
Quarter: 2008Q4

REPORT INFORMATION
  Report Type: 
  Country: None (occurrence: None)
  Receive Date: 20081007
  Receipt Date: 20080925
  Transmission Date: 20090506
  Serious: Yes (Other)
  Sender: FDA-Public Use
  Company Number: 100#02#2008-04637

PATIENT
  Age: 54 Year
  Sex: Female

DRUGS (1)
  1. ALENDRONIC ACID(TABLETS) (ALENDRONIC ACID) [Suspect]
     Indication: DRUG USE FOR UNKNOWN INDICATION
     Dosage: 70 MG, ORAL
     Route: 048

REACTIONS (6)
  - CONFUSIONAL STATE [None]
  - DISCOMFORT [None]
  - DISTURBANCE IN ATTENTION [None]
  - HOT FLUSH [None]
  - HYPERHIDROSIS [None]
  - PHARYNGEAL DISORDER [None]
